FAERS Safety Report 10416177 (Version 1)
Quarter: 2014Q3

REPORT INFORMATION
  Report Type: Report from Study
  Country: US (occurrence: US)
  Receive Date: 20140828
  Receipt Date: 20140828
  Transmission Date: 20150326
  Serious: Yes (Hospitalization)
  Sender: FDA-Public Use
  Company Number: US-009507513-1408USA013994

PATIENT
  Age: 61 Year
  Sex: Male

DRUGS (11)
  1. SUSTAIN (MESTEROLONE) [Concomitant]
     Indication: VISION BLURRED
     Dosage: 1 GTT, PRN
     Route: 047
     Dates: start: 20140603
  2. KEPPRA [Concomitant]
     Active Substance: LEVETIRACETAM
     Indication: CONVULSION PROPHYLAXIS
     Dosage: 750 MG, BID
     Route: 048
     Dates: start: 20140113
  3. SUSTAIN (MESTEROLONE) [Concomitant]
     Indication: PHOTOPHOBIA
  4. DEXAMETHASONE. [Concomitant]
     Active Substance: DEXAMETHASONE
     Indication: PROPHYLAXIS
     Dosage: 2 GTT, TID
     Route: 047
     Dates: start: 20140614
  5. DEXAMETHASONE. [Concomitant]
     Active Substance: DEXAMETHASONE
     Indication: BRAIN OEDEMA
     Dosage: 1 MG, QD
     Route: 048
     Dates: start: 20140501
  6. SUSTAIN (MESTEROLONE) [Concomitant]
     Indication: DRY EYE
  7. MOTRIN [Concomitant]
     Active Substance: IBUPROFEN
     Indication: BACK PAIN
     Dosage: 800 MG, PRN
     Route: 048
     Dates: start: 20140602
  8. ABT-414 [Suspect]
     Active Substance: INVESTIGATIONAL PRODUCT
     Indication: GLIOBLASTOMA MULTIFORME
     Dosage: DAY 1 AND DAY 15 OF 26 DAY CYCLE
     Route: 042
     Dates: start: 20140506, end: 20140715
  9. CELEXA [Concomitant]
     Active Substance: CITALOPRAM HYDROBROMIDE
     Indication: DEPRESSION
     Dosage: 20 MG, QD
     Dates: start: 20040129
  10. TYLENOL [Concomitant]
     Active Substance: ACETAMINOPHEN
     Indication: BACK PAIN
     Dosage: 650 MG, PRN
     Route: 048
     Dates: start: 20140519
  11. TEMOZOLOMIDE [Suspect]
     Active Substance: TEMOZOLOMIDE
     Indication: GLIOBLASTOMA MULTIFORME
     Dosage: DAILY ON DAY 1 TO 5 OF A 28 DAY CYCLE
     Route: 048
     Dates: start: 20140505, end: 20140705

REACTIONS (1)
  - Convulsion [Unknown]

NARRATIVE: CASE EVENT DATE: 20140726
